FAERS Safety Report 4748597-6 (Version None)
Quarter: 2005Q3

REPORT INFORMATION
  Report Type: 
  Country: None (occurrence: None)
  Receive Date: 20050817
  Receipt Date: 20050811
  Transmission Date: 20060218
  Serious: Yes (Hospitalization)
  Sender: FDA-Public Use
  Company Number: 142849USA

PATIENT
  Age: 41 Year
  Sex: Male
  Weight: 112.0385 kg

DRUGS (1)
  1. OXYCODONE [Suspect]
     Indication: PAIN
     Dosage: 80 MILLIGRAM BID ORAL
     Route: 048
     Dates: start: 20041201

REACTIONS (5)
  - CONVULSION [None]
  - DRUG WITHDRAWAL SYNDROME [None]
  - PHARMACEUTICAL PRODUCT COMPLAINT [None]
  - URTICARIA [None]
  - VOMITING [None]
